FAERS Safety Report 13635504 (Version 1)
Quarter: 2017Q2

REPORT INFORMATION
  Report Type: Spontaneous
  Country: US (occurrence: US)
  Receive Date: 20170531
  Receipt Date: 20170531
  Transmission Date: 20170830
  Serious: No
  Sender: FDA-Public Use
  Company Number: US-ASTELLAS-1720175

PATIENT
  Sex: Female

DRUGS (9)
  1. AMOXICILLIN/CLAVULANATE [Concomitant]
     Active Substance: AMOXICILLIN\CLAVULANATE POTASSIUM
  2. POLYETHYLENE GLYCOL [Concomitant]
     Active Substance: POLYETHYLENE GLYCOLS
     Dosage: 3350
     Route: 065
  3. DILANTIN [Concomitant]
     Active Substance: PHENYTOIN
  4. PHENYTOIN SODIUM, EXTENDED [Concomitant]
     Active Substance: PHENYTOIN SODIUM, EXTENDED
  5. TARCEVA [Suspect]
     Active Substance: ERLOTINIB HYDROCHLORIDE
     Indication: LUNG NEOPLASM MALIGNANT
     Dosage: TOOK ONE TABLET BY MOUTH DAILY
     Route: 048
     Dates: start: 20131009
  6. CLINDAMYCIN HCL [Concomitant]
     Active Substance: CLINDAMYCIN HYDROCHLORIDE
  7. PRIMIDONE. [Concomitant]
     Active Substance: PRIMIDONE
  8. LIDOCAINE/PRILOCAINE [Concomitant]
     Active Substance: LIDOCAINE\PRILOCAINE
  9. ACETAMINOPHEN/HYDROCODONE [Concomitant]
     Active Substance: ACETAMINOPHEN\HYDROCODONE

REACTIONS (4)
  - Onychoclasis [Not Recovered/Not Resolved]
  - Onychomadesis [Not Recovered/Not Resolved]
  - Lacrimation increased [Not Recovered/Not Resolved]
  - Eye pruritus [Not Recovered/Not Resolved]
